FAERS Safety Report 8426018-X (Version None)
Quarter: 2012Q2

REPORT INFORMATION
  Report Type: 
  Country: None (occurrence: None)
  Receive Date: 20120601
  Receipt Date: 20120521
  Transmission Date: 20120825
  Serious: Yes (Hospitalization)
  Sender: FDA-Public Use
  Company Number: 2012SP027938

PATIENT
  Age: 45 Year
  Sex: Male

DRUGS (9)
  1. FOLIC ACID [Concomitant]
  2. PEGASYS [Suspect]
     Indication: HEPATITIS C
     Dosage: 180 MCG; QW; SC, 135 MCG; QW
     Route: 058
     Dates: start: 20110220, end: 20110629
  3. PEGASYS [Suspect]
     Indication: HEPATITIS C
     Dosage: 180 MCG; QW; SC, 135 MCG; QW
     Route: 058
     Dates: start: 20110917, end: 20120124
  4. VICTRELIS [Suspect]
     Indication: HEPATITIS C
     Dosage: 2400 MG; QD; PO, 2400 MG; QD
     Route: 048
     Dates: start: 20111014, end: 20120124
  5. VICTRELIS [Suspect]
     Indication: HEPATITIS C
     Dosage: 2400 MG; QD; PO, 2400 MG; QD
     Route: 048
     Dates: start: 20120203
  6. COPEGUS [Suspect]
     Indication: HEPATITIS C
     Dosage: PO, 1400 MG; QD; PO, 1400 MG; QD; PO
     Route: 048
     Dates: start: 20120203
  7. COPEGUS [Suspect]
     Indication: HEPATITIS C
     Dosage: PO, 1400 MG; QD; PO, 1400 MG; QD; PO
     Route: 048
     Dates: start: 20110917, end: 20120124
  8. COPEGUS [Suspect]
     Indication: HEPATITIS C
     Dosage: PO, 1400 MG; QD; PO, 1400 MG; QD; PO
     Route: 048
     Dates: start: 20110220, end: 20110629
  9. SEROFLEX [Concomitant]

REACTIONS (5)
  - ASTHENIA [None]
  - NEUTROPENIA [None]
  - DECREASED APPETITE [None]
  - SLEEP DISORDER [None]
  - DEPRESSION [None]
